FAERS Safety Report 23027177 (Version 2)
Quarter: 2023Q4

REPORT INFORMATION
  Report Type: Spontaneous
  Country: US (occurrence: US)
  Receive Date: 20231004
  Receipt Date: 20231013
  Transmission Date: 20240109
  Serious: No
  Sender: FDA-Public Use
  Company Number: US-ABBVIE-5434116

PATIENT
  Age: 70 Year
  Sex: Female

DRUGS (11)
  1. LINZESS [Suspect]
     Active Substance: LINACLOTIDE
     Indication: Constipation
     Dosage: 145 MICROGRAM
     Route: 048
     Dates: start: 2018, end: 2018
  2. LINZESS [Suspect]
     Active Substance: LINACLOTIDE
     Indication: Constipation
     Dosage: 290 MICROGRAM
     Route: 048
     Dates: start: 2018
  3. CARISOPRODOL [Concomitant]
     Active Substance: CARISOPRODOL
     Indication: Myalgia
  4. ESTRADIOL [Concomitant]
     Active Substance: ESTRADIOL
     Indication: Atrophic vulvovaginitis
  5. ESTRING [Concomitant]
     Active Substance: ESTRADIOL
     Indication: Hormone therapy
  6. FAMOTIDINE [Concomitant]
     Active Substance: FAMOTIDINE
     Indication: Eagle Barrett syndrome
     Dosage: AS NEEDED
  7. PROMETHAZINE [Concomitant]
     Active Substance: PROMETHAZINE HYDROCHLORIDE
     Indication: Dizziness
  8. DIAZEPAM [Concomitant]
     Active Substance: DIAZEPAM
     Indication: Dizziness
     Dosage: FORM STRENGTH: 2 MILLIGRAM?ONCE A DAY AS NEEDED
  9. MINOCYCLINE [Concomitant]
     Active Substance: MINOCYCLINE HYDROCHLORIDE
     Indication: Product used for unknown indication
  10. TRAMADOL [Concomitant]
     Active Substance: TRAMADOL\TRAMADOL HYDROCHLORIDE
     Indication: Pain
     Dosage: AS NEEDED
  11. Armour thryoid [Concomitant]
     Indication: Hypothyroidism

REACTIONS (5)
  - Faecaloma [Not Recovered/Not Resolved]
  - Drug ineffective [Not Recovered/Not Resolved]
  - Product storage error [Not Recovered/Not Resolved]
  - Nausea [Not Recovered/Not Resolved]
  - Decreased appetite [Not Recovered/Not Resolved]

NARRATIVE: CASE EVENT DATE: 20230901
